FAERS Safety Report 8262292-0 (Version None)
Quarter: 2012Q2

REPORT INFORMATION
  Report Type: 
  Country: None (occurrence: None)
  Receive Date: 20120405
  Receipt Date: 20120322
  Transmission Date: 20120825
  Serious: Yes (Hospitalization, Other)
  Sender: FDA-Public Use
  Company Number: IT-ROCHE-1054602

PATIENT
  Sex: Female

DRUGS (1)
  1. TORADOL [Suspect]
     Indication: BACK PAIN
     Dosage: QOD
     Route: 030
     Dates: start: 20120308, end: 20120314

REACTIONS (2)
  - HAEMATEMESIS [None]
  - HAEMORRHAGIC EROSIVE GASTRITIS [None]
